APPROVED DRUG PRODUCT: ONZETRA XSAIL
Active Ingredient: SUMATRIPTAN SUCCINATE
Strength: EQ 11MG BASE
Dosage Form/Route: POWDER;NASAL
Application: N206099 | Product #001
Applicant: CURRAX PHARMACEUTICALS LLC
Approved: Jan 27, 2016 | RLD: Yes | RS: Yes | Type: RX

PATENTS:
Patent 8875704 | Expires: Apr 7, 2028
Patent 9649456 | Expires: Oct 21, 2030
Patent 10076615 | Expires: Jul 30, 2029
Patent 10076615 | Expires: Jul 30, 2029
Patent 10124132 | Expires: Mar 6, 2027
Patent 9649456 | Expires: Oct 21, 2030
Patent 9649456 | Expires: Oct 21, 2030
Patent 10478574 | Expires: Nov 4, 2033
Patent 10076615 | Expires: Jul 30, 2029
Patent 10124132 | Expires: Mar 6, 2027
Patent 11571531 | Expires: Feb 23, 2026
Patent 10124132 | Expires: Mar 6, 2027
Patent 8899229 | Expires: Aug 18, 2030
Patent 8978647 | Expires: Dec 6, 2030
Patent 10722667 | Expires: Dec 30, 2028
Patent 10398859 | Expires: Dec 19, 2027
Patent 8550073 | Expires: Oct 22, 2029
Patent 10076614 | Expires: Oct 20, 2034